FAERS Safety Report 4583638-0 (Version None)
Quarter: 2005Q1

REPORT INFORMATION
  Report Type: 
  Country: None (occurrence: None)
  Receive Date: 20050211
  Receipt Date: 20050131
  Transmission Date: 20050727
  Serious: Yes (Hospitalization, Other)
  Sender: FDA-Public Use
  Company Number: HQWYE398715JAN04

PATIENT
  Age: 36 Year
  Sex: Female
  Weight: 55.4 kg

DRUGS (12)
  1. RAPAMUNE [Suspect]
     Indication: PROPHYLAXIS AGAINST TRANSPLANT REJECTION
     Dosage: SEE IMAGE, ORAL
     Route: 048
     Dates: start: 20040112, end: 20040113
  2. RAPAMUNE [Suspect]
     Indication: PROPHYLAXIS AGAINST TRANSPLANT REJECTION
     Dosage: SEE IMAGE, ORAL
     Route: 048
     Dates: start: 20040115, end: 20040203
  3. CYCLOSPORINE [Suspect]
     Dosage: SEE IMAGE, ORAL
     Route: 048
     Dates: start: 20040101, end: 20040101
  4. CYCLOSPORINE [Suspect]
     Dosage: SEE IMAGE, ORAL
     Route: 048
     Dates: start: 20040205, end: 20040201
  5. INSULIN [Concomitant]
  6. MYCELEX [Concomitant]
  7. BACTRIM [Concomitant]
  8. NORVASC [Concomitant]
  9. CLONIDINE [Concomitant]
  10. VALCYTE [Concomitant]
  11. BUMEX [Concomitant]
  12. PREDNISONE TAB [Concomitant]

REACTIONS (12)
  - ANAPHYLACTIC REACTION [None]
  - ANURIA [None]
  - CANDIDIASIS [None]
  - COMPLICATIONS OF TRANSPLANTED KIDNEY [None]
  - DIALYSIS [None]
  - IMPAIRED HEALING [None]
  - LOCALISED OEDEMA [None]
  - NEPHRITIS INTERSTITIAL [None]
  - RENAL TUBULAR NECROSIS [None]
  - RESPIRATORY DISTRESS [None]
  - RETROPERITONEAL HAEMATOMA [None]
  - TRANSPLANT REJECTION [None]
